FAERS Safety Report 9179002 (Version 1)
Quarter: 2012Q4

REPORT INFORMATION
  Report Type: 
  Country: GB (occurrence: GB)
  Receive Date: 20121029
  Receipt Date: 20121029
  Transmission Date: 20130627
  Serious: Yes (Death)
  Sender: FDA-Public Use
  Company Number: GB-VERTEX PHARMACEUTICAL INC.-2012-023696

PATIENT
  Sex: Male

DRUGS (6)
  1. INCIVO [Suspect]
     Indication: HEPATITIS C
     Dosage: Dosage Form: Tablet
     Route: 048
     Dates: start: 20120506, end: 201208
  2. INCIVO [Suspect]
     Indication: PRODUCT USED FOR UNKNOWN INDICATION
  3. PEGASYS [Suspect]
     Indication: PRODUCT USED FOR UNKNOWN INDICATION
     Dosage: Dosage Form: Unspecified
     Route: 065
     Dates: start: 20120506
  4. COPEGUS [Suspect]
     Indication: PRODUCT USED FOR UNKNOWN INDICATION
     Dosage: Dosage Form: Unspecified
     Route: 065
     Dates: start: 20120506
  5. CITALOPRAM [Concomitant]
     Dosage: Dosage Form: Unspecified
     Route: 065
  6. VENLAFAXINE [Concomitant]
     Dosage: Dosage Form: Unspecified
     Route: 065

REACTIONS (2)
  - Death [Fatal]
  - Depressed mood [Fatal]
